FAERS Safety Report 7858126-6 (Version None)
Quarter: 2011Q4

REPORT INFORMATION
  Report Type: 
  Country: None (occurrence: None)
  Receive Date: 20111027
  Receipt Date: 20111011
  Transmission Date: 20120403
  Serious: Yes (Hospitalization, Other)
  Sender: FDA-Public Use
  Company Number: US-BAYER-2011-022599

PATIENT
  Age: 37 Year
  Sex: Female
  Weight: 111.57 kg

DRUGS (10)
  1. YAZ [Suspect]
     Indication: PREMENSTRUAL SYNDROME
  2. YAZ [Suspect]
     Indication: CONTRACEPTION
     Dosage: UNK
     Dates: start: 20010101, end: 20101101
  3. IBUPROFEN [Concomitant]
     Dosage: 600 MG, UNK
  4. YASMIN [Suspect]
     Indication: PREMENSTRUAL SYNDROME
  5. YASMIN [Suspect]
     Indication: ACNE
  6. CENTRUM [Concomitant]
  7. YAZ [Suspect]
     Indication: ACNE
  8. YASMIN [Suspect]
     Indication: CONTRACEPTION
     Dosage: UNK
     Dates: start: 20010101, end: 20101101
  9. CYCLOBENZAPRINE [Concomitant]
     Dosage: 10 MG, UNK
  10. PRENATAL PLUS IRON [Concomitant]

REACTIONS (8)
  - INJURY [None]
  - PROCEDURAL PAIN [None]
  - DYSPEPSIA [None]
  - EMOTIONAL DISTRESS [None]
  - GALLBLADDER DISORDER [None]
  - CHOLELITHIASIS [None]
  - PAIN [None]
  - ABDOMINAL PAIN [None]
